FAERS Safety Report 6556481-0 (Version None)
Quarter: 2010Q1

REPORT INFORMATION
  Report Type: 
  Country: None (occurrence: None)
  Receive Date: 20100128
  Receipt Date: 20100125
  Transmission Date: 20100710
  Serious: Yes (Disabling, Other)
  Sender: FDA-Public Use
  Company Number: US-MERCK-0911USA04323

PATIENT
  Age: 66 Year
  Sex: Female
  Weight: 66 kg

DRUGS (5)
  1. FOSAMAX [Suspect]
     Indication: OSTEOPOROSIS
     Route: 048
     Dates: start: 20050601, end: 20080401
  2. ADVAIR [Concomitant]
     Route: 055
  3. LEVOTHYROXINE SODIUM [Concomitant]
     Route: 065
  4. LIPITOR [Concomitant]
     Route: 065
  5. CALCIUM (UNSPECIFIED) [Concomitant]
     Route: 065

REACTIONS (7)
  - CATARACT [None]
  - DENTAL CARIES [None]
  - NON-HODGKIN'S LYMPHOMA [None]
  - ORAL INFECTION [None]
  - OSTEONECROSIS [None]
  - PARAESTHESIA [None]
  - PERIODONTAL DISEASE [None]
